FAERS Safety Report 10766538 (Version 3)
Quarter: 2015Q1

REPORT INFORMATION
  Report Type: Spontaneous
  Country: JP (occurrence: JP)
  Receive Date: 20150205
  Receipt Date: 20150217
  Transmission Date: 20150721
  Serious: Yes (Life-Threatening, Hospitalization, Disabling, Other)
  Sender: FDA-Public Use
  Company Number: JP-GLAXOSMITHKLINE-JP2015JPN010757

PATIENT
  Age: 78 Year
  Sex: Female
  Weight: 47 kg

DRUGS (8)
  1. VALTREX [Suspect]
     Active Substance: VALACYCLOVIR HYDROCHLORIDE
     Dosage: 1000 MG, BID
     Route: 048
     Dates: start: 20150119, end: 20150122
  2. MAINTATE [Concomitant]
     Active Substance: BISOPROLOL FUMARATE
  3. AMLODIPINE [Concomitant]
     Active Substance: AMLODIPINE BESYLATE
  4. MAGMITT [Concomitant]
     Active Substance: MAGNESIUM OXIDE
  5. VALTREX [Suspect]
     Active Substance: VALACYCLOVIR HYDROCHLORIDE
     Indication: HERPES ZOSTER
     Dosage: 500 MG, QD
     Route: 048
     Dates: start: 20150119, end: 20150122
  6. BROTIZOLAM OD [Concomitant]
  7. ALPRAZOLAM. [Concomitant]
     Active Substance: ALPRAZOLAM
  8. MEDICON [Concomitant]
     Active Substance: DEXTROMETHORPHAN HYDROBROMIDE

REACTIONS (10)
  - Cognitive disorder [Recovered/Resolved with Sequelae]
  - Insomnia [Recovering/Resolving]
  - Fluid intake reduced [Unknown]
  - Dementia [Unknown]
  - Hypophagia [Unknown]
  - Restlessness [Recovered/Resolved with Sequelae]
  - Screaming [Recovering/Resolving]
  - Dysphagia [Recovered/Resolved with Sequelae]
  - Acute kidney injury [Recovered/Resolved]
  - Affect lability [Unknown]

NARRATIVE: CASE EVENT DATE: 20150122
